FAERS Safety Report 24307376 (Version 1)
Quarter: 2024Q3

REPORT INFORMATION
  Report Type: Spontaneous
  Country: FR (occurrence: FR)
  Receive Date: 20240911
  Receipt Date: 20240911
  Transmission Date: 20241017
  Serious: Yes (Other)
  Sender: MERCK
  Company Number: FR-009507513-2409FRA003093

PATIENT
  Sex: Male

DRUGS (1)
  1. SITAGLIPTIN PHOSPHATE [Suspect]
     Active Substance: SITAGLIPTIN PHOSPHATE
     Dosage: 50 MG, 1 TABLET/DAY
     Route: 048

REACTIONS (6)
  - Diabetes mellitus inadequate control [Unknown]
  - Renal failure [Unknown]
  - Cardiac failure [Unknown]
  - Dialysis [Unknown]
  - Product prescribing error [Unknown]
  - Intercepted product prescribing error [Unknown]
